FAERS Safety Report 24705958 (Version 1)
Quarter: 2024Q4

REPORT INFORMATION
  Report Type: Spontaneous
  Country: CN (occurrence: CN)
  Receive Date: 20241206
  Receipt Date: 20241206
  Transmission Date: 20250115
  Serious: Yes (Hospitalization, Other)
  Sender: BEIGENE
  Company Number: CN-BEIGENE-BGN-2024-019373

PATIENT

DRUGS (17)
  1. TISLELIZUMAB [Suspect]
     Active Substance: TISLELIZUMAB
     Indication: Sarcomatoid carcinoma of the lung
     Dosage: UNK
     Dates: start: 20240624
  2. TISLELIZUMAB [Suspect]
     Active Substance: TISLELIZUMAB
     Dosage: UNK
     Dates: start: 20240710
  3. TISLELIZUMAB [Suspect]
     Active Substance: TISLELIZUMAB
     Dosage: UNK
     Dates: start: 20240805
  4. TISLELIZUMAB [Suspect]
     Active Substance: TISLELIZUMAB
     Dosage: UNK
     Dates: start: 20240828
  5. TISLELIZUMAB [Suspect]
     Active Substance: TISLELIZUMAB
     Dosage: UNK
     Dates: start: 20240920
  6. TISLELIZUMAB [Suspect]
     Active Substance: TISLELIZUMAB
     Dosage: 200 MILLIGRAM
     Route: 041
     Dates: start: 20241021
  7. PACLITAXEL [Concomitant]
     Active Substance: PACLITAXEL
     Indication: Sarcomatoid carcinoma of the lung
     Dosage: UNK
     Dates: start: 20240624
  8. PACLITAXEL [Concomitant]
     Active Substance: PACLITAXEL
     Dosage: UNK
     Dates: start: 20240710
  9. PACLITAXEL [Concomitant]
     Active Substance: PACLITAXEL
     Dosage: UNK
     Dates: start: 20240805
  10. PACLITAXEL [Concomitant]
     Active Substance: PACLITAXEL
     Dosage: UNK
     Dates: start: 20240828
  11. PACLITAXEL [Concomitant]
     Active Substance: PACLITAXEL
     Dosage: UNK
     Dates: start: 20240920
  12. CARBOPLATIN [Concomitant]
     Active Substance: CARBOPLATIN
     Indication: Sarcomatoid carcinoma of the lung
     Dosage: UNK
     Dates: start: 20240624
  13. CARBOPLATIN [Concomitant]
     Active Substance: CARBOPLATIN
     Dosage: UNK
     Dates: start: 20240710
  14. CARBOPLATIN [Concomitant]
     Active Substance: CARBOPLATIN
     Dosage: UNK
     Dates: start: 20240805
  15. CARBOPLATIN [Concomitant]
     Active Substance: CARBOPLATIN
     Dosage: UNK
     Dates: start: 20240828
  16. CARBOPLATIN [Concomitant]
     Active Substance: CARBOPLATIN
     Dosage: UNK
     Dates: start: 20240920
  17. DOCETAXEL [Concomitant]
     Active Substance: DOCETAXEL
     Indication: Sarcomatoid carcinoma of the lung
     Dosage: UNK
     Dates: start: 202410

REACTIONS (3)
  - Immune-mediated lung disease [Recovering/Resolving]
  - Pleural effusion [Recovering/Resolving]
  - Neoplasm progression [Unknown]

NARRATIVE: CASE EVENT DATE: 20241019
